FAERS Safety Report 7268311-2 (Version None)
Quarter: 2010Q4

REPORT INFORMATION
  Report Type: 
  Country: None (occurrence: None)
  Receive Date: 20101206
  Receipt Date: 20100928
  Transmission Date: 20110411
  Serious: No
  Sender: FDA-Public Use
  Company Number: 2010SP052003

PATIENT
  Age: 40 Year
  Sex: Male

DRUGS (3)
  1. SAPHRIS [Suspect]
     Indication: PRODUCT USED FOR UNKNOWN INDICATION
     Dosage: PO
     Route: 048
     Dates: start: 20100824
  2. AMBIEN [Concomitant]
  3. TRAZODONE HCL [Concomitant]

REACTIONS (2)
  - DYSGEUSIA [None]
  - INCORRECT ROUTE OF DRUG ADMINISTRATION [None]
